FAERS Safety Report 9912989 (Version 1)
Quarter: 2014Q1

REPORT INFORMATION
  Report Type: Spontaneous
  Country: US (occurrence: None)
  Receive Date: 20140214
  Receipt Date: 20140214
  Transmission Date: 20141002
  Serious: Yes (Hospitalization)
  Sender: FDA-Public Use
  Company Number: LEVE20140003

PATIENT
  Age: 42 Year
  Sex: Female

DRUGS (3)
  1. LEVETIRACETAM [Suspect]
     Indication: PETIT MAL EPILEPSY
     Route: 048
  2. LAMOTRIGINE [Suspect]
     Indication: PETIT MAL EPILEPSY
     Route: 048
  3. GABAPENTIN (GABAPENTIN) [Concomitant]

REACTIONS (5)
  - Lymphadenopathy [None]
  - Lymphadenopathy [None]
  - Leukocytosis [None]
  - Hepatitis [None]
  - Drug reaction with eosinophilia and systemic symptoms [None]
